FAERS Safety Report 16118369 (Version 2)
Quarter: 2019Q2

REPORT INFORMATION
  Report Type: Spontaneous
  Country: DE (occurrence: DE)
  Receive Date: 20190326
  Receipt Date: 20190418
  Transmission Date: 20190711
  Serious: Yes (Other)
  Sender: FDA-Public Use
  Company Number: DE-ASTRAZENECA-2019SE43663

PATIENT
  Sex: Male

DRUGS (3)
  1. MIFLONIDE BREEZHALER [Suspect]
     Active Substance: BUDESONIDE
     Indication: PRODUCT USED FOR UNKNOWN INDICATION
     Dosage: 460 UG, BID, 920 UG/INHAL DAILY
     Route: 055
  2. MIFLONIDE BREEZHALER [Suspect]
     Active Substance: BUDESONIDE
     Indication: ASTHMA
     Dosage: 460 UG, BID, 920 UG/INHAL DAILY
     Route: 055
  3. MIFLONIDE BREEZHALER [Suspect]
     Active Substance: BUDESONIDE
     Indication: PULMONARY FIBROSIS
     Dosage: 460 UG, BID, 920 UG/INHAL DAILY
     Route: 055

REACTIONS (3)
  - Product physical issue [Unknown]
  - Foreign body aspiration [Not Recovered/Not Resolved]
  - Device malfunction [Unknown]

NARRATIVE: CASE EVENT DATE: 20190212
